FAERS Safety Report 19189926 (Version 1)
Quarter: 2021Q2

REPORT INFORMATION
  Report Type: Spontaneous
  Country: JP (occurrence: JP)
  Receive Date: 20210428
  Receipt Date: 20210428
  Transmission Date: 20210717
  Serious: Yes (Death)
  Sender: FDA-Public Use
  Company Number: JP-JNJFOC-A-CH2019-197108

PATIENT
  Age: 90 Year
  Sex: Female
  Weight: 32 kg

DRUGS (11)
  1. UPTRAVI [Suspect]
     Active Substance: SELEXIPAG
     Indication: PULMONARY ARTERIAL HYPERTENSION
     Dosage: 0.8 MG, QD
     Route: 048
     Dates: end: 20190911
  2. UPTRAVI [Suspect]
     Active Substance: SELEXIPAG
     Dosage: 0.2 MG, BID
     Route: 048
     Dates: start: 20180418, end: 20190507
  3. TAKEPRON [Concomitant]
     Active Substance: LANSOPRAZOLE
     Indication: SYSTEMIC SCLERODERMA
     Dates: start: 20190827, end: 20190920
  4. REVATIO [Concomitant]
     Active Substance: SILDENAFIL CITRATE
     Indication: PULMONARY ARTERIAL HYPERTENSION
     Dates: start: 20190912, end: 20190921
  5. L?CARBOCISTEINE [Concomitant]
     Active Substance: CARBOCYSTEINE
     Indication: SYSTEMIC SCLERODERMA
     Dates: start: 20190826, end: 20190916
  6. SOLDACTONE [Concomitant]
     Active Substance: CANRENOATE POTASSIUM
     Indication: SYSTEMIC SCLERODERMA
     Dates: start: 20190913, end: 20190919
  7. OPSUMIT [Suspect]
     Active Substance: MACITENTAN
     Indication: PULMONARY ARTERIAL HYPERTENSION
     Dosage: 10 MG, QD
     Route: 048
     Dates: start: 20171220, end: 20190911
  8. ASPARA POTASSIUM [Concomitant]
     Active Substance: POTASSIUM ASPARTATE
     Indication: SYSTEMIC SCLERODERMA
     Dates: start: 20190829, end: 20190914
  9. TAZOPIPE [Concomitant]
     Active Substance: PIPERACILLIN SODIUM\TAZOBACTAM SODIUM
     Indication: SYSTEMIC SCLERODERMA
     Dates: start: 20190826, end: 20190909
  10. UPTRAVI [Suspect]
     Active Substance: SELEXIPAG
     Dosage: 0.2 MG, BID
     Route: 048
     Dates: start: 20190508, end: 20190921
  11. BELSOMRA [Concomitant]
     Active Substance: SUVOREXANT
     Indication: SYSTEMIC SCLERODERMA
     Dates: start: 20190826, end: 20190920

REACTIONS (1)
  - Pulmonary arterial hypertension [Fatal]

NARRATIVE: CASE EVENT DATE: 20190911
